FAERS Safety Report 25497710 (Version 1)
Quarter: 2025Q3

REPORT INFORMATION
  Report Type: Other
  Country: CA (occurrence: CA)
  Receive Date: 20250701
  Receipt Date: 20250701
  Transmission Date: 20251021
  Serious: Yes (Hospitalization, Disabling, Other)
  Sender: APOTEX
  Company Number: CA-PGRTD-001130547

PATIENT
  Age: 87 Year
  Sex: Female

DRUGS (1)
  1. ALENDRONATE [Suspect]
     Active Substance: ALENDRONATE SODIUM
     Indication: Product used for unknown indication
     Route: 065

REACTIONS (2)
  - Skin disorder [Recovering/Resolving]
  - Femur fracture [Recovering/Resolving]
